FAERS Safety Report 9069613 (Version 1)
Quarter: 2013Q1

REPORT INFORMATION
  Report Type: Report from Study
  Country: US (occurrence: US)
  Receive Date: 20130131
  Receipt Date: 20130131
  Transmission Date: 20140127
  Serious: No
  Sender: FDA-Public Use
  Company Number: US-ABBOTT-12P-163-1002150-00

PATIENT
  Age: 52 Year
  Sex: Male

DRUGS (2)
  1. HUMIRA [Suspect]
     Indication: CROHN^S DISEASE
     Dosage: LOADING DOSE
     Dates: start: 20120925, end: 20120925
  2. LOMOTIL [Concomitant]
     Indication: DIARRHOEA
     Dosage: 4 PILLS IN A.M. AND 4 PILLS IN THE P.M.
     Route: 048

REACTIONS (3)
  - Pruritus [Recovered/Resolved]
  - Psoriasis [Recovered/Resolved]
  - Ear infection [Recovered/Resolved]
